FAERS Safety Report 22098738 (Version 1)
Quarter: 2023Q1

REPORT INFORMATION
  Report Type: Spontaneous
  Country: CN (occurrence: CN)
  Receive Date: 20230315
  Receipt Date: 20230315
  Transmission Date: 20230417
  Serious: Yes (Other)
  Sender: FDA-Public Use
  Company Number: CN-ROCHE-3303748

PATIENT
  Age: 51 Year
  Sex: Female

DRUGS (1)
  1. TARCEVA [Suspect]
     Active Substance: ERLOTINIB HYDROCHLORIDE
     Indication: Lung adenocarcinoma
     Dosage: 150 MG, ONCE DAILY (OVER 2 YEARS)
     Route: 048

REACTIONS (6)
  - Corneal perforation [Unknown]
  - Iridocele [Unknown]
  - Eyelash thickening [Unknown]
  - Erythema of eyelid [Unknown]
  - Conjunctival hyperaemia [Unknown]
  - Growth of eyelashes [Unknown]
